FAERS Safety Report 24588262 (Version 1)
Quarter: 2024Q4

REPORT INFORMATION
  Report Type: Spontaneous
  Country: DE (occurrence: DE)
  Receive Date: 20241107
  Receipt Date: 20241107
  Transmission Date: 20250115
  Serious: Yes (Other)
  Sender: VIIV
  Company Number: DE-VIIV HEALTHCARE-DE2024EME132509

PATIENT

DRUGS (3)
  1. TRIUMEQ [Suspect]
     Active Substance: ABACAVIR SULFATE\DOLUTEGRAVIR SODIUM\LAMIVUDINE
     Indication: HIV infection
     Dosage: UNK UNK, QD
  2. COMIRNATY (TOZINAMERAN) [Suspect]
     Active Substance: TOZINAMERAN
     Indication: Prophylaxis
     Dosage: UNK
     Dates: start: 20210401
  3. SPIKEVAX [Suspect]
     Active Substance: CX-046684
     Indication: Prophylaxis
     Dosage: UNK
     Dates: start: 20220117

REACTIONS (4)
  - Pneumonia [Unknown]
  - CD4 lymphocytes abnormal [Unknown]
  - Suspected COVID-19 [Unknown]
  - Fatigue [Unknown]
